FAERS Safety Report 7737946-2 (Version None)
Quarter: 2011Q3

REPORT INFORMATION
  Report Type: 
  Country: None (occurrence: None)
  Receive Date: 20110908
  Receipt Date: 20110811
  Transmission Date: 20111222
  Serious: Yes (Hospitalization, Other)
  Sender: FDA-Public Use
  Company Number: US-WATSON-2011-12558

PATIENT
  Age: 76 Year
  Sex: Male

DRUGS (1)
  1. DILTIAZEM HYDROCHLORIDE [Suspect]
     Indication: PRODUCT USED FOR UNKNOWN INDICATION
     Dosage: 30 MG, UNKNOWN

REACTIONS (4)
  - VOMITING [None]
  - SMALL INTESTINAL OBSTRUCTION [None]
  - EPIGASTRIC DISCOMFORT [None]
  - NAUSEA [None]
